FAERS Safety Report 8082388-6 (Version None)
Quarter: 2012Q1

REPORT INFORMATION
  Report Type: 
  Country: None (occurrence: None)
  Receive Date: 20120127
  Receipt Date: 20110217
  Transmission Date: 20120608
  Serious: No
  Sender: FDA-Public Use
  Company Number: US-ABBOTT-11P-163-0706075-00

PATIENT
  Age: 48 Year
  Sex: Female

DRUGS (5)
  1. HUMIRA [Suspect]
     Indication: PSORIASIS
     Dates: start: 20110117
  2. CYMBALTA [Concomitant]
     Indication: FIBROMYALGIA
     Dosage: 60MG DAILY
  3. ERYTHROMYCIN [Interacting]
     Indication: INFLUENZA LIKE ILLNESS
     Dates: start: 20110216
  4. IBUPROFEN [Interacting]
     Indication: INFLUENZA LIKE ILLNESS
     Dates: start: 20110216
  5. IBUPROFEN [Concomitant]
     Indication: PAIN
     Dosage: PRN

REACTIONS (4)
  - PRURITUS [None]
  - DRUG INTERACTION [None]
  - INFLUENZA LIKE ILLNESS [None]
  - SINUSITIS [None]
